FAERS Safety Report 14145700 (Version 1)
Quarter: 2017Q4

REPORT INFORMATION
  Report Type: Spontaneous
  Country: US (occurrence: None)
  Receive Date: 20171031
  Receipt Date: 20171031
  Transmission Date: 20180321
  Serious: Yes (Other)
  Sender: FDA-Public Use
  Company Number: None

PATIENT
  Age: 44 Year
  Sex: Female
  Weight: 60 kg

DRUGS (1)
  1. MIRENA [Suspect]
     Active Substance: LEVONORGESTREL
     Dates: start: 20120411, end: 20160520

REACTIONS (5)
  - Depression [None]
  - Alopecia [None]
  - Mood swings [None]
  - Vision blurred [None]
  - Weight increased [None]

NARRATIVE: CASE EVENT DATE: 20140501
